FAERS Safety Report 14437367 (Version 1)
Quarter: 2018Q1

REPORT INFORMATION
  Report Type: Spontaneous
  Country: US (occurrence: US)
  Receive Date: 20180125
  Receipt Date: 20180125
  Transmission Date: 20180509
  Serious: No
  Sender: FDA-Public Use
  Company Number: US-ABBVIE-17K-163-1912135-00

PATIENT
  Age: 55 Year
  Sex: Female

DRUGS (2)
  1. NAPROXEN. [Concomitant]
     Active Substance: NAPROXEN
     Indication: PRODUCT USED FOR UNKNOWN INDICATION
  2. HUMIRA [Suspect]
     Active Substance: ADALIMUMAB
     Indication: SPONDYLOARTHROPATHY
     Route: 058
     Dates: start: 201610, end: 20170126

REACTIONS (3)
  - Mouth ulceration [Recovering/Resolving]
  - Nasal ulcer [Recovering/Resolving]
  - Genital ulceration [Recovering/Resolving]

NARRATIVE: CASE EVENT DATE: 201612
